FAERS Safety Report 20955161 (Version 1)
Quarter: 2022Q2

REPORT INFORMATION
  Report Type: Spontaneous
  Country: US (occurrence: None)
  Receive Date: 20220613
  Receipt Date: 20220613
  Transmission Date: 20220720
  Serious: Yes (Death)
  Sender: FDA-Public Use
  Company Number: None

PATIENT
  Age: 56 Year
  Sex: Male

DRUGS (1)
  1. TACROLIMUS [Suspect]
     Active Substance: TACROLIMUS
     Indication: Liver transplant
     Dosage: OTHER QUANTITY : 0.5MG;?FREQUENCY : TWICE A DAY;?
     Route: 048
     Dates: start: 20220321, end: 20220607

REACTIONS (1)
  - Death [None]

NARRATIVE: CASE EVENT DATE: 20220608
